FAERS Safety Report 14687207 (Version 1)
Quarter: 2018Q1

REPORT INFORMATION
  Report Type: Spontaneous
  Country: DE (occurrence: DE)
  Receive Date: 20180328
  Receipt Date: 20180328
  Transmission Date: 20180509
  Serious: Yes (Hospitalization)
  Sender: FDA-Public Use
  Company Number: DE-AUROBINDO-AUR-APL-2018-012749

PATIENT
  Sex: Male

DRUGS (2)
  1. AZATHIOPRIN [Suspect]
     Active Substance: AZATHIOPRINE
     Indication: MYASTHENIA GRAVIS
     Dosage: 375 MILLIGRAM DAILY; ()
     Route: 048
  2. METFORMIN [Suspect]
     Active Substance: METFORMIN HYDROCHLORIDE
     Indication: TYPE 2 DIABETES MELLITUS
     Dosage: 2000 MILLIGRAM DAILY; ()
     Route: 065

REACTIONS (3)
  - Lactic acidosis [Recovering/Resolving]
  - Hepatic failure [Recovering/Resolving]
  - Pancytopenia [Recovering/Resolving]
